FAERS Safety Report 8573462-6 (Version None)
Quarter: 2012Q2

REPORT INFORMATION
  Report Type: 
  Country: None (occurrence: None)
  Receive Date: 20120423
  Receipt Date: 20101019
  Transmission Date: 20120825
  Serious: Yes (Hospitalization)
  Sender: FDA-Public Use
  Company Number: PHHY2010US70378

PATIENT
  Sex: Female
  Weight: 76 kg

DRUGS (1)
  1. EXJADE [Suspect]
     Indication: CHRONIC MYELOID LEUKAEMIA
     Dosage: 1500 MG, ORAL
     Route: 048

REACTIONS (5)
  - SWELLING [None]
  - ARTHRALGIA [None]
  - URTICARIA [None]
  - HYPERSENSITIVITY [None]
  - RASH [None]
